FAERS Safety Report 7064485-7 (Version None)
Quarter: 2010Q4

REPORT INFORMATION
  Report Type: 
  Country: None (occurrence: None)
  Receive Date: 20101027
  Receipt Date: 20101015
  Transmission Date: 20110411
  Serious: Yes (Other)
  Sender: FDA-Public Use
  Company Number: NO-PFIZER INC-2010131076

PATIENT
  Age: 75 Year
  Sex: Female

DRUGS (2)
  1. ZELDOX [Suspect]
     Dosage: UNK
     Dates: start: 20040101, end: 20040101
  2. LAMICTAL [Concomitant]
     Indication: EPILEPSY
     Dosage: UNK

REACTIONS (2)
  - EPILEPSY [None]
  - PARKINSON'S DISEASE [None]
